FAERS Safety Report 8306863-1 (Version None)
Quarter: 2012Q2

REPORT INFORMATION
  Report Type: 
  Country: None (occurrence: None)
  Receive Date: 20120424
  Receipt Date: 20120416
  Transmission Date: 20120825
  Serious: Yes (Death)
  Sender: FDA-Public Use
  Company Number: JP-EISAI INC-E7389-02333-SPO-JP

PATIENT
  Age: 47 Year
  Sex: Female
  Weight: 56 kg

DRUGS (1)
  1. HALAVEN [Suspect]
     Indication: BREAST CANCER RECURRENT
     Route: 041
     Dates: start: 20120410, end: 20120410

REACTIONS (1)
  - RESPIRATORY FAILURE [None]
